FAERS Safety Report 8624464-2 (Version None)
Quarter: 2012Q3

REPORT INFORMATION
  Report Type: 
  Country: None (occurrence: None)
  Receive Date: 20120827
  Receipt Date: 20120820
  Transmission Date: 20120928
  Serious: Yes (Hospitalization, Other)
  Sender: FDA-Public Use
  Company Number: JP-B.I. PHARMACEUTICALS,INC./RIDGEFIELD-2012-BP-20187NB

PATIENT
  Age: 76 Year
  Sex: Male

DRUGS (1)
  1. MICARDIS [Suspect]
     Dosage: 80 MG
     Route: 048

REACTIONS (2)
  - TRANSIENT ISCHAEMIC ATTACK [None]
  - RHABDOMYOLYSIS [None]
